FAERS Safety Report 6773998-4 (Version None)
Quarter: 2010Q2

REPORT INFORMATION
  Report Type: 
  Country: None (occurrence: None)
  Receive Date: 20100617
  Receipt Date: 20100607
  Transmission Date: 20101027
  Serious: Yes (Other)
  Sender: FDA-Public Use
  Company Number: US-SANOFI-AVENTIS-2010SA024376

PATIENT
  Age: 79 Year
  Sex: Female
  Weight: 91 kg

DRUGS (20)
  1. OPTICLICK [Suspect]
     Indication: TYPE 2 DIABETES MELLITUS
  2. LANTUS [Suspect]
     Indication: TYPE 2 DIABETES MELLITUS
     Dosage: DOSE:15 UNIT(S)
     Route: 058
  3. ATENOLOL [Concomitant]
     Route: 065
  4. BENICAR [Concomitant]
     Route: 065
  5. FOSAMAX [Concomitant]
     Route: 065
  6. LEVOTHYROXINE SODIUM [Concomitant]
     Route: 065
  7. PANTOPRAZOLE [Concomitant]
     Route: 065
  8. ACTOS [Concomitant]
     Route: 065
  9. GABAPENTIN [Concomitant]
     Route: 065
  10. ACETAMINOPHEN [Concomitant]
     Route: 065
  11. NOVOLOG [Concomitant]
     Dosage: DOSE:4 UNIT(S)
     Route: 065
  12. FUROSEMIDE [Concomitant]
     Dosage: 2 DAILY
     Route: 065
  13. NIACIN [Concomitant]
     Route: 065
  14. ASPIRIN [Concomitant]
     Route: 065
  15. CENTRUM SILVER [Concomitant]
     Route: 065
  16. METHOCARBAMOL [Concomitant]
     Route: 065
  17. VITAMIN B-12 [Concomitant]
     Route: 065
  18. CALCIUM CITRATE [Concomitant]
     Route: 065
  19. VITAMIN D [Concomitant]
     Route: 065
  20. PROCRIT [Concomitant]
     Route: 065

REACTIONS (3)
  - BLOOD GLUCOSE INCREASED [None]
  - PRODUCT QUALITY ISSUE [None]
  - WRIST FRACTURE [None]
